FAERS Safety Report 8119788 (Version 2)
Quarter: 2012Q4

REPORT INFORMATION
  Report Type: 
  Country: US (occurrence: US)
  Receive Date: 20110902
  Receipt Date: 20121015
  Transmission Date: 20130627
  Serious: Yes (Other)
  Sender: FDA-Public Use
  Company Number: US-ASTRAZENECA-2011SE51138

PATIENT
  Age: 68 Year
  Sex: Female

DRUGS (2)
  1. CRESTOR [Suspect]
     Route: 048
  2. TOPAMAX [Concomitant]

REACTIONS (4)
  - Gastrointestinal disorder [Unknown]
  - Fall [Unknown]
  - Intervertebral disc protrusion [Unknown]
  - Headache [Unknown]
